FAERS Safety Report 7541013-0 (Version None)
Quarter: 2011Q2

REPORT INFORMATION
  Report Type: 
  Country: None (occurrence: None)
  Receive Date: 20110610
  Receipt Date: 20110607
  Transmission Date: 20111010
  Serious: Yes (Other)
  Sender: FDA-Public Use
  Company Number: NL-ABBOTT-11P-114-0720728-00

PATIENT
  Sex: Female
  Weight: 80 kg

DRUGS (4)
  1. EZETIMIBE/SAMVASTATIN [Concomitant]
     Indication: BLOOD CHOLESTEROL INCREASED
     Dosage: 10MG/40MG DAILY
     Dates: start: 20100801
  2. HUMIRA [Suspect]
     Indication: RHEUMATOID ARTHRITIS
     Route: 058
     Dates: start: 20110201, end: 20110505
  3. FOLIC ACID [Concomitant]
     Indication: VITAMIN B12
     Dates: start: 20100101
  4. METHOTREXATE [Concomitant]
     Indication: RHEUMATOID ARTHRITIS
     Dates: start: 20100101

REACTIONS (6)
  - MONOPLEGIA [None]
  - DRY MOUTH [None]
  - GAIT DISTURBANCE [None]
  - MUSCLE DISORDER [None]
  - SENSORY LOSS [None]
  - MOBILITY DECREASED [None]
